FAERS Safety Report 9399775 (Version 2)
Quarter: 2013Q3

REPORT INFORMATION
  Report Type: Spontaneous
  Country: JP (occurrence: JP)
  Receive Date: 20130710
  Receipt Date: 20130712
  Transmission Date: 20140515
  Serious: Yes (Other)
  Sender: FDA-Public Use
  Company Number: PIN-2013-00034

PATIENT
  Sex: 0

DRUGS (2)
  1. PHOTOFRIN [Suspect]
     Indication: GASTRIC CANCER
     Route: 042
  2. PHOTODYNAMIC THERAPY [Suspect]
     Indication: GASTRIC CANCER

REACTIONS (2)
  - Pyloric stenosis [None]
  - Off label use [None]
